FAERS Safety Report 18225298 (Version 1)
Quarter: 2020Q3

REPORT INFORMATION
  Report Type: Spontaneous
  Country: US (occurrence: US)
  Receive Date: 20200903
  Receipt Date: 20200903
  Transmission Date: 20201103
  Serious: Yes (Disabling)
  Sender: FDA-Public Use
  Company Number: US-009507513-2008USA014511

PATIENT
  Age: 27 Year
  Sex: Male

DRUGS (4)
  1. VIMPAT [Concomitant]
     Active Substance: LACOSAMIDE
     Dosage: UNK
  2. VENLAFAXINE HYDROCHLORIDE. [Concomitant]
     Active Substance: VENLAFAXINE HYDROCHLORIDE
     Dosage: UNK
  3. STROMECTOL [Suspect]
     Active Substance: IVERMECTIN
     Indication: BRAIN NEOPLASM MALIGNANT
     Dosage: 63 MILLIGRAM, PER WEEK
     Route: 048
     Dates: start: 20200813, end: 20200822
  4. VYVANSE [Concomitant]
     Active Substance: LISDEXAMFETAMINE DIMESYLATE
     Dosage: UNK

REACTIONS (11)
  - Nausea [Recovering/Resolving]
  - Vertigo [Recovering/Resolving]
  - Product use in unapproved indication [Unknown]
  - Eye pain [Recovering/Resolving]
  - Headache [Not Recovered/Not Resolved]
  - Musculoskeletal disorder [Recovering/Resolving]
  - Adverse event [Recovering/Resolving]
  - Fall [Recovering/Resolving]
  - Vomiting [Recovering/Resolving]
  - Eye movement disorder [Recovering/Resolving]
  - Dizziness [Not Recovered/Not Resolved]

NARRATIVE: CASE EVENT DATE: 20200813
